FAERS Safety Report 6614018-1 (Version None)
Quarter: 2010Q1

REPORT INFORMATION
  Report Type: 
  Country: None (occurrence: None)
  Receive Date: 20100304
  Receipt Date: 20100226
  Transmission Date: 20100710
  Serious: Yes (Hospitalization)
  Sender: FDA-Public Use
  Company Number: DE-MERCK-1001DEU00096

PATIENT
  Age: 12 Year
  Sex: Female
  Weight: 42 kg

DRUGS (2)
  1. SINGULAIR [Suspect]
     Indication: ASTHMA
     Route: 048
     Dates: start: 20040419, end: 20091001
  2. SINGULAIR [Suspect]
     Indication: HYPERSENSITIVITY
     Route: 048
     Dates: start: 20040419, end: 20091001

REACTIONS (11)
  - ACUTE PSYCHOSIS [None]
  - ANXIETY [None]
  - DISTURBANCE IN SOCIAL BEHAVIOUR [None]
  - DIZZINESS [None]
  - HALLUCINATIONS, MIXED [None]
  - INNER EAR DISORDER [None]
  - NIGHTMARE [None]
  - SINOATRIAL BLOCK [None]
  - SPINAL DISORDER [None]
  - VERTIGO [None]
  - WANDERING PACEMAKER [None]
